FAERS Safety Report 20534952 (Version 8)
Quarter: 2022Q2

REPORT INFORMATION
  Report Type: Spontaneous
  Country: IT (occurrence: IT)
  Receive Date: 20220302
  Receipt Date: 20220527
  Transmission Date: 20220721
  Serious: Yes (Hospitalization, Other)
  Sender: FDA-Public Use
  Company Number: IT-VA000000599-2022000112

PATIENT
  Age: 58 Year
  Sex: Male
  Weight: 55 kg

DRUGS (18)
  1. ASPIRIN [Suspect]
     Active Substance: ASPIRIN
     Indication: Product used for unknown indication
     Dosage: 100 MILLIGRAM, ONCE A DAY
     Route: 065
  2. KETOROLAC [Suspect]
     Active Substance: KETOROLAC TROMETHAMINE
     Indication: Product used for unknown indication
     Dosage: 50 GTT DROPS, TWO TIMES A DAY
     Route: 065
  3. OLMESARTAN MEDOXOMIL [Suspect]
     Active Substance: OLMESARTAN MEDOXOMIL
     Indication: Product used for unknown indication
     Dosage: 20 MILLIGRAM, ONCE A DAY (20 MG DIE)
     Route: 065
  4. PREGABALIN [Suspect]
     Active Substance: PREGABALIN
     Indication: Analgesic therapy
     Dosage: 25 MILLIGRAM, ONCE A DAY
     Route: 065
  5. LANSOPRAZOLE [Suspect]
     Active Substance: LANSOPRAZOLE
     Indication: Product used for unknown indication
     Dosage: 30 MILLIGRAM, ONCE A DAY (30 MG DIE)
     Route: 065
  6. BISOPROLOL [Interacting]
     Active Substance: BISOPROLOL
     Indication: Product used for unknown indication
     Dosage: UNK, ONCE A DAY
     Route: 065
  7. DEXAMETHASONE [Suspect]
     Active Substance: DEXAMETHASONE
     Indication: Product used for unknown indication
     Dosage: 8 MILLIGRAM, ONCE A DAY (IN THE MORNING)
     Route: 065
  8. DEXAMETHASONE [Suspect]
     Active Substance: DEXAMETHASONE
     Indication: Product used for unknown indication
     Dosage: UNK, ONCE A DAY QD (1 FL PER DAY)
     Route: 065
  9. ENOXAPARIN [Suspect]
     Active Substance: ENOXAPARIN
     Indication: Anticoagulant therapy
     Dosage: UNK, ONCE A DAY
     Route: 065
  10. FENTANYL [Suspect]
     Active Substance: FENTANYL
     Indication: Analgesic therapy
     Dosage: UNK, EVERY 3 WEEKS
     Route: 065
  11. FENTANYL [Suspect]
     Active Substance: FENTANYL
     Dosage: 3 DAY, UNK, Q3D (/ 1 / 72H)
     Route: 065
  12. MORPHINE SULFATE [Suspect]
     Active Substance: MORPHINE SULFATE
     Indication: Analgesic therapy
     Dosage: UNK, TWO TIMES A DAY
     Route: 065
  13. METOCLOPRAMIDE HYDROCHLORIDE [Suspect]
     Active Substance: METOCLOPRAMIDE HYDROCHLORIDE
     Indication: Product used for unknown indication
     Dosage: 10 MILLIGRAM, TWO TIMES A DAY(10 MILLIGRAM, BID (1 VIAL FOR LUNCH AND DINNER, 10 MG, BID) )
     Route: 065
  14. ACETAMINOPHEN\CODEINE PHOSPHATE [Suspect]
     Active Substance: ACETAMINOPHEN\CODEINE PHOSPHATE
     Indication: Back pain
     Dosage: 1 DOSAGE FORM, 3 TIMES A DAY (90/1500 MILLIGRAM )
     Route: 065
  15. ACETAMINOPHEN\CODEINE PHOSPHATE [Suspect]
     Active Substance: ACETAMINOPHEN\CODEINE PHOSPHATE
     Indication: Abdominal pain
     Dosage: 1 DOSAGE FORM, 3 TIMES A DAY ((TID (30/500 MILLIGRAM, Q8HR THREE TIMES A DAY EVERY 8 HOURS) )
     Route: 065
  16. PREGABALIN [Suspect]
     Active Substance: PREGABALIN
     Indication: Analgesic therapy
     Dosage: 1 DOSAGE FORM, ONCE A DAY IN THE EVENING
     Route: 065
  17. CORTISONE [Concomitant]
     Active Substance: CORTISONE
     Indication: Product used for unknown indication
     Dosage: UNK
     Route: 065
  18. COLCHICINE [Concomitant]
     Active Substance: COLCHICINE
     Indication: Product used for unknown indication
     Dosage: UNK
     Route: 065

REACTIONS (12)
  - Constipation [Recovered/Resolved]
  - Nausea [Recovered/Resolved]
  - Heart sounds abnormal [Unknown]
  - Breath sounds abnormal [Unknown]
  - Weight decreased [Unknown]
  - Muscle atrophy [Unknown]
  - Back pain [Unknown]
  - Dehydration [Unknown]
  - Abdominal pain [Unknown]
  - Gastrointestinal motility disorder [Unknown]
  - Dry mouth [Recovering/Resolving]
  - Strabismus [Unknown]
